FAERS Safety Report 8190853-6 (Version None)
Quarter: 2012Q1

REPORT INFORMATION
  Report Type: 
  Country: None (occurrence: None)
  Receive Date: 20120221
  Receipt Date: 20111104
  Transmission Date: 20120608
  Serious: No
  Sender: FDA-Public Use
  Company Number: 1000025240

PATIENT
  Age: 71 Year
  Sex: Female

DRUGS (6)
  1. LEVOXYL(LEVOTHYROXINE SODIUM)(LEVOTHYROXINE SODIUM) [Concomitant]
  2. VIIBRYD [Suspect]
     Indication: DEPRESSION
     Dosage: 10 MG (10 MG, 1 IN 1 D),ORAL, 20 MG (20 MG, 1 IN 1 D),ORAL,  40 MG (40 MG, 1 IN 1 D),ORAL
     Route: 048
     Dates: start: 20110810, end: 20110816
  3. VIIBRYD [Suspect]
     Indication: DEPRESSION
     Dosage: 10 MG (10 MG, 1 IN 1 D),ORAL, 20 MG (20 MG, 1 IN 1 D),ORAL,  40 MG (40 MG, 1 IN 1 D),ORAL
     Route: 048
     Dates: start: 20110803, end: 20110809
  4. VIIBRYD [Suspect]
     Indication: DEPRESSION
     Dosage: 10 MG (10 MG, 1 IN 1 D),ORAL, 20 MG (20 MG, 1 IN 1 D),ORAL,  40 MG (40 MG, 1 IN 1 D),ORAL
     Route: 048
     Dates: start: 20110817
  5. XANAX [Concomitant]
  6. NEXIUM [Concomitant]

REACTIONS (1)
  - CATARACT [None]
